FAERS Safety Report 4967202-7 (Version None)
Quarter: 2006Q2

REPORT INFORMATION
  Report Type: 
  Country: None (occurrence: None)
  Receive Date: 20060403
  Receipt Date: 20060320
  Transmission Date: 20061013
  Serious: Yes (Other)
  Sender: FDA-Public Use
  Company Number: 2006038978

PATIENT
  Age: 59 Year
  Sex: Male
  Weight: 63.5036 kg

DRUGS (2)
  1. LYRICA [Suspect]
     Indication: FEELING HOT
     Dosage: 150 MG (75 MB, 2 IN 1 D), ORAL
     Route: 048
     Dates: start: 20060227, end: 20060318
  2. DIAZEPAM [Concomitant]

REACTIONS (4)
  - CONDITION AGGRAVATED [None]
  - DRUG INEFFECTIVE [None]
  - FEELING HOT [None]
  - THROAT TIGHTNESS [None]
